FAERS Safety Report 18065729 (Version 1)
Quarter: 2020Q3

REPORT INFORMATION
  Report Type: Spontaneous
  Country: IN (occurrence: IN)
  Receive Date: 20200724
  Receipt Date: 20200724
  Transmission Date: 20201103
  Serious: Yes (Death)
  Sender: FDA-Public Use
  Company Number: IN-ABBVIE-20K-078-3488475-00

PATIENT
  Age: 28 Week
  Sex: Female
  Weight: .9 kg

DRUGS (1)
  1. SURVANTA [Suspect]
     Active Substance: BERACTANT
     Indication: RESPIRATORY DISTRESS
     Dosage: DOSAGEFORM:SOLUTION.1DOSE SURVANTA GIVEN BY 12 HOURS OFBIRTH.SECOND DOSE GIVEN 1WEEK AFTER
     Route: 039

REACTIONS (2)
  - Infection [Fatal]
  - Drug ineffective [Unknown]

NARRATIVE: CASE EVENT DATE: 20200712
